FAERS Safety Report 5034019-7 (Version None)
Quarter: 2006Q2

REPORT INFORMATION
  Report Type: 
  Country: None (occurrence: None)
  Receive Date: 20060620
  Receipt Date: 20060605
  Transmission Date: 20061013
  Serious: Yes (Other)
  Sender: FDA-Public Use
  Company Number: 225946

PATIENT
  Age: 33 Year
  Sex: Female
  Weight: 88 kg

DRUGS (8)
  1. XOLAIR [Suspect]
     Indication: ASTHMA
     Dosage: 300 MG, 1/MONTH, SUBCUTANEOUS
     Route: 058
     Dates: start: 20040324, end: 20060301
  2. CORTAN [Suspect]
     Dosage: 15 TO 50 MG, QD, ORAL
     Route: 048
  3. SERETIDE DISKUS (FLUTICASONE PROPIONATE, SALMETEROL XINAFOATE) [Suspect]
     Dosage: 2 DF, BID, NASAL
     Route: 045
  4. THEOPHYLLINE [Suspect]
     Dosage: 300 MG, BID, ORAL
     Route: 048
  5. COMBIVENT [Suspect]
     Dosage: 2 DF, TID, NASAL
     Route: 045
  6. FOSAMAX [Suspect]
     Dosage: 70 MG, 1/WEEK, ORAL
     Route: 048
  7. BRICANYL [Suspect]
     Dosage: 5 MG, TID,
  8. ATROVENT [Suspect]
     Dosage: 0.5 MG, TID, NASAL
     Route: 045

REACTIONS (2)
  - ABORTION SPONTANEOUS [None]
  - DRUG EXPOSURE DURING PREGNANCY [None]
